FAERS Safety Report 9124544 (Version 2)
Quarter: 2013Q2

REPORT INFORMATION
  Report Type: Report from Study
  Country: US (occurrence: US)
  Receive Date: 20130227
  Receipt Date: 20130402
  Transmission Date: 20140414
  Serious: Yes (Hospitalization)
  Sender: FDA-Public Use
  Company Number: US-ACTELION-A-US2013-79641

PATIENT
  Age: 45 Year
  Sex: Female

DRUGS (4)
  1. TRACLEER [Suspect]
     Indication: PULMONARY ARTERIAL HYPERTENSION
     Dosage: 125 MG, BID
     Route: 048
     Dates: start: 20120408, end: 20130215
  2. TRACLEER [Suspect]
     Dosage: 62.5 MG, BID
     Route: 048
     Dates: start: 20120308
  3. SILDENAFIL [Concomitant]
  4. COUMADIN [Concomitant]

REACTIONS (6)
  - Lung transplant [Recovering/Resolving]
  - Procedural haemorrhage [Recovering/Resolving]
  - Pulmonary arterial hypertension [Unknown]
  - Condition aggravated [Unknown]
  - Right ventricular failure [Unknown]
  - Disease progression [Unknown]
